FAERS Safety Report 13485093 (Version 1)
Quarter: 2017Q2

REPORT INFORMATION
  Report Type: Spontaneous
  Country: US (occurrence: US)
  Receive Date: 20170425
  Receipt Date: 20170425
  Transmission Date: 20170830
  Serious: Yes (Death)
  Sender: FDA-Public Use
  Company Number: None

PATIENT
  Age: 61 Year
  Sex: Male

DRUGS (18)
  1. BASAGLAR [Concomitant]
     Active Substance: INSULIN GLARGINE
  2. LANTUS [Concomitant]
     Active Substance: INSULIN GLARGINE
  3. NUPLAZID [Suspect]
     Active Substance: PIMAVANSERIN TARTRATE
     Indication: PARKINSON^S DISEASE
     Route: 048
     Dates: start: 20161017, end: 20170423
  4. LEVOTHYROXIN [Concomitant]
     Active Substance: LEVOTHYROXINE
  5. FUROSEMIDE. [Suspect]
     Active Substance: FUROSEMIDE
  6. ACYCLOVIR. [Concomitant]
     Active Substance: ACYCLOVIR
  7. NYSTOP [Concomitant]
     Active Substance: NYSTATIN
  8. HALOPERIDOL. [Concomitant]
     Active Substance: HALOPERIDOL
  9. DONEPEZIL. [Concomitant]
     Active Substance: DONEPEZIL
  10. TESTOSTERONE GEL [Concomitant]
     Active Substance: TESTOSTERONE
  11. HUMALOG [Concomitant]
     Active Substance: INSULIN LISPRO
  12. QUETIAPINE. [Concomitant]
     Active Substance: QUETIAPINE
  13. STRIBILD [Concomitant]
     Active Substance: COBICISTAT\ELVITEGRAVIR\EMTRICITABINE\TENOFOVIR DISOPROXIL FUMARATE
  14. RYTARY [Concomitant]
     Active Substance: CARBIDOPA\LEVODOPA
  15. NOVOLOG [Concomitant]
     Active Substance: INSULIN ASPART
  16. OMEPRAZOLE. [Concomitant]
     Active Substance: OMEPRAZOLE
  17. CIPROFLOXACN [Concomitant]
     Active Substance: CIPROFLOXACIN
  18. MORPHINE SUL [Concomitant]
     Active Substance: MORPHINE SULFATE

REACTIONS (1)
  - Death [None]

NARRATIVE: CASE EVENT DATE: 20170423
